FAERS Safety Report 6370132-X (Version None)
Quarter: 2009Q3

REPORT INFORMATION
  Report Type: 
  Country: None (occurrence: None)
  Receive Date: 20090918
  Receipt Date: 20090911
  Transmission Date: 20100115
  Serious: Yes (Hospitalization)
  Sender: FDA-Public Use
  Company Number: 20097396

PATIENT
  Sex: Female

DRUGS (1)
  1. LIORESAL [Suspect]
     Indication: MUSCLE SPASTICITY
     Dosage: 24.06 MCG, DAIILY, INTRATHECAL - SEE
     Route: 037

REACTIONS (2)
  - HERPES ZOSTER [None]
  - INFUSION SITE INFECTION [None]
